FAERS Safety Report 4508139-7 (Version None)
Quarter: 2004Q4

REPORT INFORMATION
  Report Type: 
  Country: None (occurrence: None)
  Receive Date: 20041123
  Receipt Date: 20031024
  Transmission Date: 20050328
  Serious: No
  Sender: FDA-Public Use
  Company Number: US-GLAXOSMITHKLINE-A0431799A

PATIENT
  Sex: Female

DRUGS (9)
  1. WELLBUTRIN [Suspect]
     Indication: DEPRESSION
     Dosage: 300MG PER DAY
     Route: 048
     Dates: start: 20030101
  2. KLONOPIN [Concomitant]
  3. METHOTREXATE [Concomitant]
  4. DARVOCET [Concomitant]
  5. PREDNISOLONE [Concomitant]
  6. FLEXERIL [Concomitant]
  7. SALAGEN [Concomitant]
  8. FOLIC ACID [Concomitant]
  9. PHENERGAN [Concomitant]

REACTIONS (1)
  - RASH [None]
